FAERS Safety Report 7183748-8 (Version None)
Quarter: 2010Q4

REPORT INFORMATION
  Report Type: 
  Country: None (occurrence: None)
  Receive Date: 20101222
  Receipt Date: 20101214
  Transmission Date: 20110411
  Serious: Yes (Other)
  Sender: FDA-Public Use
  Company Number: BE-NOVOPROD-320212

PATIENT
  Age: 64 Year

DRUGS (3)
  1. VICTOZA [Suspect]
     Indication: TYPE 2 DIABETES MELLITUS
     Dosage: UNKNOWN
     Route: 065
  2. GLUCOPHAGE [Concomitant]
     Dosage: 2 X 500 MG
  3. UNI DIAMICRON [Concomitant]
     Dosage: 4 TABLETS

REACTIONS (1)
  - RENAL IMPAIRMENT [None]
